FAERS Safety Report 20124875 (Version 1)
Quarter: 2021Q4

REPORT INFORMATION
  Report Type: Spontaneous
  Country: US (occurrence: None)
  Receive Date: 20211126
  Receipt Date: 20211126
  Transmission Date: 20220303
  Serious: Yes (Other)
  Sender: FDA-Public Use
  Company Number: None

PATIENT
  Sex: Female

DRUGS (1)
  1. HUMIRA [Suspect]
     Active Substance: ADALIMUMAB
     Indication: Hidradenitis
     Dosage: FREQUENCY : EVERY OTHER WEEK;?
     Route: 058

REACTIONS (11)
  - Confusional state [None]
  - Dysarthria [None]
  - Somnolence [None]
  - Poisoning [None]
  - Paraesthesia [None]
  - Nausea [None]
  - Dizziness [None]
  - Dysphemia [None]
  - Amnesia [None]
  - Psychotic disorder [None]
  - Rash [None]
